FAERS Safety Report 5708370-9 (Version None)
Quarter: 2008Q2

REPORT INFORMATION
  Report Type: 
  Country: None (occurrence: None)
  Receive Date: 20080417
  Receipt Date: 20080408
  Transmission Date: 20081010
  Serious: Yes (Hospitalization)
  Sender: FDA-Public Use
  Company Number: FR-ASTRAZENECA-2008CG00560

PATIENT
  Age: 29326 Day
  Sex: Female
  Weight: 129.8 kg

DRUGS (4)
  1. CRESTOR [Suspect]
     Indication: HYPERCHOLESTEROLAEMIA
     Route: 048
     Dates: start: 20070601
  2. INVESTIGATIONAL DRUG [Suspect]
     Indication: DEMENTIA ALZHEIMER'S TYPE
     Route: 048
     Dates: start: 20071217
  3. GALANTAMINE HYDROBROMIDE [Concomitant]
     Dates: start: 20051105
  4. BETAHISTINE HYDROCHLORIDE [Concomitant]
     Dates: start: 20070701

REACTIONS (1)
  - PAIN IN EXTREMITY [None]
